FAERS Safety Report 17943836 (Version 1)
Quarter: 2020Q2

REPORT INFORMATION
  Report Type: Spontaneous
  Country: BR (occurrence: BR)
  Receive Date: 20200625
  Receipt Date: 20200625
  Transmission Date: 20200714
  Serious: Yes (Other)
  Sender: FDA-Public Use
  Company Number: BR-ABBVIE-20K-020-3458729-00

PATIENT
  Age: 58 Year
  Sex: Male

DRUGS (5)
  1. HUMIRA [Suspect]
     Active Substance: ADALIMUMAB
     Indication: PRODUCT USED FOR UNKNOWN INDICATION
     Route: 058
  2. CIMEGRIPE [Concomitant]
     Indication: PRODUCT USED FOR UNKNOWN INDICATION
  3. CORISTINA D [Concomitant]
     Indication: PRODUCT USED FOR UNKNOWN INDICATION
  4. NOVALGINA [Concomitant]
     Active Substance: METAMIZOLE SODIUM
     Indication: PRODUCT USED FOR UNKNOWN INDICATION
  5. VITAMIN C [Concomitant]
     Active Substance: ASCORBIC ACID
     Indication: PRODUCT USED FOR UNKNOWN INDICATION

REACTIONS (17)
  - Fear [Unknown]
  - Influenza [Unknown]
  - Nail infection [Unknown]
  - Suspected COVID-19 [Unknown]
  - Ankylosing spondylitis [Unknown]
  - Laboratory test abnormal [Unknown]
  - Prostatic specific antigen abnormal [Unknown]
  - Uveitis [Unknown]
  - Prostatic specific antigen abnormal [Recovered/Resolved]
  - Liver function test abnormal [Unknown]
  - Groin pain [Unknown]
  - Syncope [Unknown]
  - Photopsia [Unknown]
  - Anosmia [Unknown]
  - Hepatotoxicity [Recovering/Resolving]
  - Taste disorder [Unknown]
  - Paronychia [Unknown]
